FAERS Safety Report 6297783-5 (Version None)
Quarter: 2009Q3

REPORT INFORMATION
  Report Type: 
  Country: None (occurrence: None)
  Receive Date: 20090804
  Receipt Date: 20090804
  Transmission Date: 20100115
  Serious: No
  Sender: FDA-Public Use
  Company Number: None

PATIENT
  Sex: Female
  Weight: 72.5755 kg

DRUGS (1)
  1. NITROFURANTOIN [Suspect]
     Indication: URINARY TRACT INFECTION
     Dosage: 14 CAPSULES, 2 TIMES A DAY
     Dates: start: 20090801, end: 20090802

REACTIONS (6)
  - ASTHENIA [None]
  - CHEST PAIN [None]
  - DIZZINESS [None]
  - DRUG INTOLERANCE [None]
  - FATIGUE [None]
  - FEELING ABNORMAL [None]
